FAERS Safety Report 6714474-4 (Version None)
Quarter: 2010Q2

REPORT INFORMATION
  Report Type: 
  Country: None (occurrence: None)
  Receive Date: 20100506
  Receipt Date: 20100427
  Transmission Date: 20101027
  Serious: Yes (Hospitalization, Other)
  Sender: FDA-Public Use
  Company Number: US-AMGEN-QUU409155

PATIENT
  Sex: Female

DRUGS (1)
  1. ENBREL [Suspect]
     Indication: RHEUMATOID ARTHRITIS
     Route: 058
     Dates: start: 20060728

REACTIONS (12)
  - ASTHENIA [None]
  - BLOOD CALCIUM DECREASED [None]
  - BLOOD POTASSIUM INCREASED [None]
  - BLOOD SODIUM DECREASED [None]
  - DYSSTASIA [None]
  - HEPATIC CIRRHOSIS [None]
  - INNER EAR DISORDER [None]
  - KIDNEY INFECTION [None]
  - LIVER DISORDER [None]
  - NAUSEA [None]
  - URINARY INCONTINENCE [None]
  - URINARY TRACT INFECTION [None]
